FAERS Safety Report 10370428 (Version 1)
Quarter: 2014Q1

REPORT INFORMATION
  Report Type: Spontaneous
  Country: US (occurrence: None)
  Receive Date: 20140306
  Receipt Date: 20140306
  Transmission Date: 20141002
  Serious: Yes (Disabling, Other)
  Sender: FDA-Public Use
  Company Number: 163-21880-13090177

PATIENT
  Age: 81 Year
  Sex: Female

DRUGS (5)
  1. REVLIMID [Suspect]
     Indication: MYELODYSPLASTIC SYNDROME
     Route: 048
     Dates: start: 20130807, end: 20130819
  2. LEVAQUIN (LEVOFLOXACIN) (UNKNOWN) [Concomitant]
  3. ZEGERID (OMEPRAZOLE) (UNKNOWN) [Concomitant]
  4. ACYCLOVIR (ACICLOVIR) (UNKNOWN) [Concomitant]
  5. DIFLUCAN (FLUCONAZOLE) (UNKNOWN) [Concomitant]

REACTIONS (5)
  - White blood cell count decreased [None]
  - Neutropenia [None]
  - Haemoglobin decreased [None]
  - Haematocrit decreased [None]
  - Platelet count decreased [None]
